FAERS Safety Report 6511868-7 (Version None)
Quarter: 2009Q4

REPORT INFORMATION
  Report Type: 
  Country: None (occurrence: None)
  Receive Date: 20091222
  Receipt Date: 20091214
  Transmission Date: 20100525
  Serious: Yes (Other)
  Sender: FDA-Public Use
  Company Number: AU-ELI_LILLY_AND_COMPANY-AU200911002980

PATIENT
  Sex: Female

DRUGS (4)
  1. CYMBALTA [Suspect]
     Indication: DEPRESSION
     Dosage: 60 MG, UNKNOWN
     Route: 065
     Dates: start: 20091030, end: 20091031
  2. IBRUPROFEN [Concomitant]
     Dosage: UNK, UNKNOWN
     Route: 065
  3. VENTOLIN [Concomitant]
     Dosage: UNK, UNKNOWN
     Route: 065
  4. SYMBICORT [Concomitant]
     Dosage: UNK, UNKNOWN
     Route: 065

REACTIONS (3)
  - HEADACHE [None]
  - SWELLING FACE [None]
  - VOMITING [None]
